FAERS Safety Report 12730682 (Version 2)
Quarter: 2016Q4

REPORT INFORMATION
  Report Type: Spontaneous
  Country: BR (occurrence: BR)
  Receive Date: 20160910
  Receipt Date: 20161022
  Transmission Date: 20170207
  Serious: Yes (Other)
  Sender: FDA-Public Use
  Company Number: BR-AMGEN-BRASP2016022200

PATIENT
  Age: 37 Year
  Sex: Female
  Weight: 76 kg

DRUGS (7)
  1. PREDNISONE. [Concomitant]
     Active Substance: PREDNISONE
     Indication: PAIN
     Dosage: 5 MG, AS NEEDED
     Dates: start: 2009
  2. METHOTREXATE. [Concomitant]
     Active Substance: METHOTREXATE
     Dosage: 2.5 MG, 6 TABLETS AT ONCE, 1X/WEEK
  3. ENDOFOLIN [Concomitant]
     Active Substance: FOLIC ACID
     Dosage: 5 MG, 1X/DAY, WHEN SHE TAKES PREDNISONE
     Dates: start: 2009
  4. ENBREL [Suspect]
     Active Substance: ETANERCEPT
     Indication: RHEUMATOID ARTHRITIS
     Dosage: 50 MG EVERY 15 DAYS
     Route: 058
     Dates: start: 20151218
  5. ENBREL [Suspect]
     Active Substance: ETANERCEPT
     Dosage: 50 MG EVERY 15 DAYS
     Route: 058
     Dates: start: 2016, end: 201605
  6. TECNOMET [Concomitant]
     Active Substance: METHOTREXATE
     Dosage: 6 TABLETS OF 2.5MG (3 IN THE MORNING AND 3 IN THE AFTERNOON) ONCE WEEKLY
     Dates: start: 2009
  7. ENBREL [Suspect]
     Active Substance: ETANERCEPT
     Dosage: UNK
     Route: 065
     Dates: start: 201601

REACTIONS (7)
  - Liver disorder [Unknown]
  - Intentional product misuse [Unknown]
  - Product use issue [Unknown]
  - Therapeutic response unexpected [Unknown]
  - Pre-existing condition improved [Unknown]
  - Injection site pain [Unknown]
  - Fall [Unknown]

NARRATIVE: CASE EVENT DATE: 201512
